FAERS Safety Report 5882941-1 (Version None)
Quarter: 2008Q3

REPORT INFORMATION
  Report Type: 
  Country: None (occurrence: None)
  Receive Date: 20080913
  Receipt Date: 20080821
  Transmission Date: 20090109
  Serious: No
  Sender: FDA-Public Use
  Company Number: US-ABBOTT-08P-163-0471997-00

PATIENT
  Sex: Female
  Weight: 127.27 kg

DRUGS (3)
  1. HUMIRA [Suspect]
     Indication: RHEUMATOID ARTHRITIS
     Route: 058
     Dates: start: 20070101
  2. METHOTREXATE [Concomitant]
     Indication: RHEUMATOID ARTHRITIS
     Route: 048
     Dates: start: 20010101
  3. ARTHROTEC [Concomitant]
     Indication: RHEUMATOID ARTHRITIS
     Dosage: 75 MG 1-3 TIMES DAILY AS NEEDED
     Route: 048
     Dates: start: 20010101

REACTIONS (1)
  - RASH PAPULAR [None]
